FAERS Safety Report 5191997-3 (Version None)
Quarter: 2006Q4

REPORT INFORMATION
  Report Type: 
  Country: None (occurrence: None)
  Receive Date: 20061220
  Receipt Date: 20061204
  Transmission Date: 20070319
  Serious: Yes (Hospitalization)
  Sender: FDA-Public Use
  Company Number: 233613

PATIENT
  Age: 71 Year
  Sex: Female

DRUGS (4)
  1. AVASTIN [Suspect]
     Indication: COLORECTAL CANCER
     Dosage: 300 MG, Q3W, INTRAVENOUS
     Route: 042
     Dates: start: 20060912
  2. OXALIPLATIN [Suspect]
     Indication: COLORECTAL CANCER
     Dosage: 140 MG, Q3W, INTRAVENOUS
     Route: 042
     Dates: start: 20060912
  3. CAPECITABINE (CAPECITABINE) [Suspect]
     Indication: COLORECTAL CANCER
     Dosage: 5300 MG, ORAL
     Route: 048
     Dates: start: 20060912
  4. ONDANSETRON [Concomitant]

REACTIONS (1)
  - HERPES ZOSTER [None]
